FAERS Safety Report 17902245 (Version 1)
Quarter: 2020Q2

REPORT INFORMATION
  Report Type: Spontaneous
  Country: US (occurrence: US)
  Receive Date: 20200616
  Receipt Date: 20200616
  Transmission Date: 20200714
  Serious: Yes (Hospitalization)
  Sender: FDA-Public Use
  Company Number: US-PROCTER_AND_GAMBLE-GS20070588

PATIENT

DRUGS (1)
  1. VICKS VAPOSHOWER (CAMPHOR (SYNTHETIC)\EUCALYPTUS OIL\MENTHOL) [Suspect]
     Active Substance: CAMPHOR (SYNTHETIC)\EUCALYPTUS OIL\MENTHOL
     Dosage: UNK
     Route: 055

REACTIONS (2)
  - Pneumonia [Recovered/Resolved]
  - Genital burning sensation [Recovered/Resolved]
